FAERS Safety Report 16855962 (Version 1)
Quarter: 2019Q3

REPORT INFORMATION
  Report Type: Spontaneous
  Country: JP (occurrence: JP)
  Receive Date: 20190926
  Receipt Date: 20190926
  Transmission Date: 20191005
  Serious: Yes (Other)
  Sender: FDA-Public Use
  Company Number: JP-BRISTOL-MYERS SQUIBB COMPANY-BMS-2019-036716

PATIENT
  Age: 84 Year
  Sex: Male
  Weight: 58 kg

DRUGS (2)
  1. YERVOY [Suspect]
     Active Substance: IPILIMUMAB
     Indication: RENAL CELL CARCINOMA
     Dosage: 50 MILLIGRAM, Q3WK
     Route: 041
     Dates: start: 20181101, end: 20190104
  2. OPDIVO [Suspect]
     Active Substance: NIVOLUMAB
     Indication: RENAL CELL CARCINOMA
     Dosage: 240 MILLIGRAM
     Route: 041
     Dates: start: 20181101, end: 20190301

REACTIONS (3)
  - Malignant neoplasm progression [Unknown]
  - Hypothyroidism [Recovering/Resolving]
  - Cardiac failure [Unknown]

NARRATIVE: CASE EVENT DATE: 20190201
